FAERS Safety Report 4614890-0 (Version None)
Quarter: 2005Q1

REPORT INFORMATION
  Report Type: 
  Country: None (occurrence: None)
  Receive Date: 20050322
  Receipt Date: 20030811
  Transmission Date: 20050727
  Serious: Yes (Hospitalization)
  Sender: FDA-Public Use
  Company Number: US-KINGPHARMUSA00001-K200301324

PATIENT
  Age: 86 Year
  Sex: Female

DRUGS (14)
  1. ALTACE [Suspect]
     Dosage: 2.5 MG, QD
     Route: 048
     Dates: start: 20030221, end: 20030520
  2. RIFADIN [Concomitant]
     Dosage: 300 MG, QD
     Route: 048
     Dates: start: 20030404, end: 20030509
  3. RIFADIN [Concomitant]
     Dosage: 300 MG, QD
     Dates: start: 20030613, end: 20030703
  4. RIFADIN [Concomitant]
     Dosage: 400 MG, QD
     Dates: start: 20030703
  5. CETORNAN [Suspect]
     Dosage: 1 U, QD
     Route: 048
     Dates: end: 20030516
  6. RIMIFON [Suspect]
     Dosage: 300 MG, QD
     Route: 048
     Dates: start: 20030404, end: 20030516
  7. MYAMBUTOL [Concomitant]
     Dosage: 1200 MG, QD
     Route: 048
     Dates: start: 20030404, end: 20030408
  8. DAFALGAN [Concomitant]
     Dosage: 1500 MG, QD
     Route: 048
     Dates: end: 20030507
  9. DIGOXIN [Concomitant]
     Dosage: 1 U, UNK
     Route: 048
  10. OMEPRAZOLE [Concomitant]
     Dosage: 20 MG, UNK
     Route: 048
  11. PRIMPERAN TAB [Concomitant]
     Dosage: 3 U, UNK
  12. VITAMIN B1 AND B6 [Concomitant]
     Dosage: 6 U, UNK
  13. XANAX [Concomitant]
     Dosage: 1-0-1 U
  14. STILNOX [Concomitant]
     Dosage: 1 U, UNK
     Dates: end: 20030519

REACTIONS (7)
  - ALANINE AMINOTRANSFERASE INCREASED [None]
  - ASPARTATE AMINOTRANSFERASE INCREASED [None]
  - BLOOD ALKALINE PHOSPHATASE INCREASED [None]
  - BLOOD BILIRUBIN INCREASED [None]
  - GAMMA-GLUTAMYLTRANSFERASE INCREASED [None]
  - JAUNDICE [None]
  - LIVER FUNCTION TEST ABNORMAL [None]
